FAERS Safety Report 5229521-9 (Version None)
Quarter: 2007Q1

REPORT INFORMATION
  Report Type: 
  Country: None (occurrence: None)
  Receive Date: 20061201
  Receipt Date: 20060912
  Transmission Date: 20070707
  Serious: No
  Sender: FDA-Public Use
  Company Number: 2006PV021129

PATIENT
  Age: 52 Year
  Sex: Female
  Weight: 117.028 kg

DRUGS (4)
  1. BYETTA [Suspect]
     Indication: DIABETES MELLITUS NON-INSULIN-DEPENDENT
     Dosage: 5 MCG;BID;SC
     Route: 058
     Dates: start: 20060830
  2. GLUCOPHAGE [Concomitant]
  3. ADVAIR DISKUS 100/50 [Concomitant]
  4. AVANDAMET [Concomitant]

REACTIONS (5)
  - ASTHMA [None]
  - BLOOD GLUCOSE INCREASED [None]
  - BRONCHITIS [None]
  - CONDITION AGGRAVATED [None]
  - DECREASED APPETITE [None]
